FAERS Safety Report 4747745-1 (Version None)
Quarter: 2005Q3

REPORT INFORMATION
  Report Type: 
  Country: None (occurrence: None)
  Receive Date: 20050817
  Receipt Date: 20050817
  Transmission Date: 20060218
  Serious: Yes (Hospitalization)
  Sender: FDA-Public Use
  Company Number: None

PATIENT
  Sex: Male
  Weight: 84 kg

DRUGS (1)
  1. DOXYCYCLINE [Suspect]
     Dosage: 100MG BID ORAL
     Route: 048
     Dates: start: 20050316, end: 20050506

REACTIONS (2)
  - RASH [None]
  - URTICARIA [None]
